FAERS Safety Report 24406356 (Version 1)
Quarter: 2024Q4

REPORT INFORMATION
  Report Type: Spontaneous
  Country: US (occurrence: None)
  Receive Date: 20241005
  Receipt Date: 20241005
  Transmission Date: 20250115
  Serious: Yes (Hospitalization)
  Sender: Public
  Company Number: None

PATIENT
  Age: 18 Year
  Sex: Female
  Weight: 49.5 kg

DRUGS (6)
  1. AMOXICILLIN [Suspect]
     Active Substance: AMOXICILLIN
     Indication: Helicobacter infection
     Dosage: FREQUENCY : 3 TIMES A DAY;?
     Route: 048
     Dates: start: 20240907, end: 20240907
  2. DOCUSATE SODIUM [Concomitant]
     Active Substance: DOCUSATE SODIUM
  3. FAMOTIDINE [Concomitant]
     Active Substance: FAMOTIDINE
  4. IBUPROFEN [Concomitant]
     Active Substance: IBUPROFEN
  5. OMEPRAZOLE [Concomitant]
     Active Substance: OMEPRAZOLE
  6. Prenatal Vit-Fe Fumarate-FA [Concomitant]

REACTIONS (8)
  - Dizziness [None]
  - Paraesthesia [None]
  - Loss of consciousness [None]
  - Dyspnoea [None]
  - Peripheral swelling [None]
  - Vomiting [None]
  - Hypotension [None]
  - Anaphylactic reaction [None]

NARRATIVE: CASE EVENT DATE: 20240907
